FAERS Safety Report 9114622 (Version 1)
Quarter: 2013Q1

REPORT INFORMATION
  Report Type: Spontaneous
  Country: US (occurrence: None)
  Receive Date: 20130220
  Receipt Date: 20130220
  Transmission Date: 20140127
  Serious: Yes (Hospitalization)
  Sender: FDA-Public Use
  Company Number: None

PATIENT
  Age: 57 Year
  Sex: Female
  Weight: 58.97 kg

DRUGS (8)
  1. BENLYSTA [Suspect]
     Dosage: 4 WEEKS
     Route: 042
     Dates: start: 20111220
  2. HYDROCODONE/APAP [Concomitant]
  3. PANTOPRAZOLE [Concomitant]
  4. CARVEDILOL [Concomitant]
  5. ATORVASTATIN [Concomitant]
  6. LEVOFIOXACIN [Concomitant]
  7. FERROUS SULFATE [Concomitant]
  8. METHOTREXATE [Concomitant]

REACTIONS (1)
  - Myocardial infarction [None]
